FAERS Safety Report 8951654 (Version 3)
Quarter: 2012Q4

REPORT INFORMATION
  Report Type: 
  Country: US (occurrence: US)
  Receive Date: 20121204
  Receipt Date: 20121227
  Transmission Date: 20130627
  Serious: Yes (Death, Hospitalization, Other)
  Sender: FDA-Public Use
  Company Number: US-BAXTER-2012BAX025290

PATIENT
  Age: 61 Year
  Sex: Male

DRUGS (2)
  1. DIANEAL LOW CALCIUM [Suspect]
     Indication: PERITONEAL DIALYSIS
     Route: 033
     Dates: end: 20121122
  2. DIANEAL LOW CALCIUM (ULTRABAG) [Suspect]
     Indication: PERITONEAL DIALYSIS
     Route: 033
     Dates: end: 20121122

REACTIONS (24)
  - Cardio-respiratory arrest [Fatal]
  - Peritonitis [Fatal]
  - Respiratory failure [Fatal]
  - Hypoxia [Fatal]
  - Sleep apnoea syndrome [Fatal]
  - Renal failure chronic [Fatal]
  - Hypertension [Fatal]
  - Peritonitis [Fatal]
  - Latent tuberculosis [Fatal]
  - Hyperlipidaemia [Fatal]
  - Haemorrhoids [Fatal]
  - Oesophagitis [Fatal]
  - Hyperparathyroidism [Fatal]
  - Coronary artery disease [Fatal]
  - Aortic dilatation [Fatal]
  - Sepsis [Unknown]
  - Bradycardia [Unknown]
  - Peritonitis bacterial [Unknown]
  - Abnormal behaviour [Unknown]
  - Muscle twitching [Unknown]
  - Lethargy [Unknown]
  - Agitation [Unknown]
  - Confusional state [Unknown]
  - Unresponsive to stimuli [Unknown]
